FAERS Safety Report 16965415 (Version 1)
Quarter: 2019Q4

REPORT INFORMATION
  Report Type: Spontaneous
  Country: US (occurrence: US)
  Receive Date: 20191028
  Receipt Date: 20191028
  Transmission Date: 20200122
  Serious: Yes (Death)
  Sender: FDA-Public Use
  Company Number: US-PFIZER INC-2019459552

PATIENT
  Age: 6 Decade
  Sex: Male

DRUGS (2)
  1. LYRICA [Suspect]
     Active Substance: PREGABALIN
     Indication: ARTHRITIS
  2. LYRICA [Suspect]
     Active Substance: PREGABALIN
     Indication: FIBROMYALGIA
     Dosage: UNK
     Dates: start: 2000, end: 2017

REACTIONS (5)
  - Weight increased [Not Recovered/Not Resolved]
  - Body height decreased [Unknown]
  - Pneumonia [Fatal]
  - Arthropathy [Unknown]
  - Fat tissue increased [Not Recovered/Not Resolved]
